FAERS Safety Report 6996595-4 (Version None)
Quarter: 2010Q3

REPORT INFORMATION
  Report Type: 
  Country: None (occurrence: None)
  Receive Date: 20100918
  Receipt Date: 20090507
  Transmission Date: 20110219
  Serious: No
  Sender: FDA-Public Use
  Company Number: US-WYE-H09271209

PATIENT
  Sex: Female
  Weight: 109.41 kg

DRUGS (13)
  1. EFFEXOR XR [Suspect]
     Indication: DEPRESSION
     Route: 048
     Dates: start: 20060501
  2. LASIX [Concomitant]
  3. PAXIL [Concomitant]
  4. SIMVASTATIN [Concomitant]
  5. XANAX [Concomitant]
  6. LISINOPRIL [Concomitant]
  7. LITHIUM CARBONATE [Concomitant]
  8. TRICOR [Concomitant]
  9. SYNTHROID [Concomitant]
  10. METOPROLOL [Concomitant]
  11. ASPIRIN [Concomitant]
  12. NEXIUM [Concomitant]
  13. LANTUS [Concomitant]

REACTIONS (1)
  - MEDICATION RESIDUE [None]
